FAERS Safety Report 15580121 (Version 1)
Quarter: 2018Q4

REPORT INFORMATION
  Report Type: Report from Study
  Country: FR (occurrence: FR)
  Receive Date: 20181102
  Receipt Date: 20181102
  Transmission Date: 20190205
  Serious: Yes (Hospitalization, Other)
  Sender: FDA-Public Use
  Company Number: FR-GILEAD-2018-0371167

PATIENT
  Age: 62 Year
  Sex: Male
  Weight: 68 kg

DRUGS (4)
  1. PROPRANOLOL [Concomitant]
     Active Substance: PROPRANOLOL HYDROCHLORIDE
     Indication: HYPERTENSION
     Dosage: 80 MG
     Dates: start: 201509
  2. RIBAVIRIN. [Suspect]
     Active Substance: RIBAVIRIN
     Indication: HEPATITIS
     Dosage: 1000 MG, QD
     Route: 065
     Dates: start: 20140215, end: 20140708
  3. SOFOSBUVIR [Suspect]
     Active Substance: SOFOSBUVIR
     Indication: HEPATITIS
     Dosage: 400 MG, QD
     Route: 065
     Dates: start: 20140215, end: 20140728
  4. VIRAFERONPEG [Suspect]
     Active Substance: PEGINTERFERON ALFA-2B
     Indication: HEPATITIS
     Dosage: 100 UG, Q1WK
     Route: 065
     Dates: start: 20140215, end: 20140506

REACTIONS (1)
  - Hepatocellular carcinoma [Unknown]

NARRATIVE: CASE EVENT DATE: 20180627
